FAERS Safety Report 23408567 (Version 3)
Quarter: 2025Q2

REPORT INFORMATION
  Report Type: Report from Study
  Country: EG (occurrence: EG)
  Receive Date: 20240117
  Receipt Date: 20250523
  Transmission Date: 20250717
  Serious: Yes (Other)
  Sender: NOVARTIS
  Company Number: EG-002147023-NVSC2024EG009625

PATIENT
  Age: 33 Year
  Sex: Female

DRUGS (9)
  1. GILENYA [Suspect]
     Active Substance: FINGOLIMOD HYDROCHLORIDE
     Indication: Multiple sclerosis
     Route: 048
     Dates: start: 202209
  2. GILENYA [Suspect]
     Active Substance: FINGOLIMOD HYDROCHLORIDE
     Dosage: 0.5 MG, QD (DECREASE DOSE TO ONE CAPSULE DAY BY DAY)
     Route: 048
  3. GILENYA [Suspect]
     Active Substance: FINGOLIMOD HYDROCHLORIDE
     Route: 048
  4. GILENYA [Suspect]
     Active Substance: FINGOLIMOD HYDROCHLORIDE
     Dosage: 0.5 MG, QD (DECREASE DOSE TO ONE CAPSULE DAY BY DAY)
     Route: 048
     Dates: start: 202309
  5. Ambezim [Concomitant]
     Indication: Antiinflammatory therapy
     Dosage: 1 DOSAGE FORM, QD
     Route: 065
     Dates: start: 202209
  6. METHYLCOBALAMIN [Concomitant]
     Active Substance: METHYLCOBALAMIN
     Indication: Product used for unknown indication
     Route: 065
  7. BENFOTIAMINE\CYANOCOBALAMIN\PYRIDOXINE HYDROCHLORIDE [Concomitant]
     Active Substance: BENFOTIAMINE\CYANOCOBALAMIN\PYRIDOXINE HYDROCHLORIDE
     Indication: Hypovitaminosis
     Dosage: 1 DOSAGE FORM, QD
     Route: 065
     Dates: start: 202209
  8. CALCIUM [Concomitant]
     Active Substance: CALCIUM
     Indication: Hypovitaminosis
     Route: 065
  9. OMEGA 3 [Concomitant]
     Active Substance: CAPSAICIN
     Indication: Hypovitaminosis
     Dosage: 1 DOSAGE FORM, QD, CAPSULE
     Route: 065
     Dates: start: 202209

REACTIONS (15)
  - Multiple sclerosis [Unknown]
  - Migraine [Not Recovered/Not Resolved]
  - Haemoglobin decreased [Unknown]
  - Liver function test increased [Unknown]
  - Neuropathy peripheral [Unknown]
  - Asthenopia [Not Recovered/Not Resolved]
  - Disturbance in attention [Not Recovered/Not Resolved]
  - Insomnia [Not Recovered/Not Resolved]
  - Gastrointestinal disorder [Not Recovered/Not Resolved]
  - Hepatic enzyme increased [Recovered/Resolved]
  - Helicobacter infection [Unknown]
  - Dyspepsia [Unknown]
  - Vitamin D deficiency [Unknown]
  - Calcium deficiency [Unknown]
  - Off label use [Unknown]

NARRATIVE: CASE EVENT DATE: 20220901
